FAERS Safety Report 5720565-7 (Version None)
Quarter: 2008Q2

REPORT INFORMATION
  Report Type: 
  Country: None (occurrence: None)
  Receive Date: 20080428
  Receipt Date: 20080428
  Transmission Date: 20081010
  Serious: Yes (Life-Threatening, Other)
  Sender: FDA-Public Use
  Company Number: None

PATIENT
  Sex: Male
  Weight: 99.7913 kg

DRUGS (2)
  1. DIGITEK -GENERIC FOR LANOXIN- 40 MG AND 125 MCG DIGOXIN BY BERTEK [Suspect]
     Indication: POSTOPERATIVE CARE
     Dosage: 1 TABLET  1 X DAILY PO
     Route: 048
     Dates: start: 19971120, end: 20080426
  2. DIGITEK -GENERIC FOR LANOXIN- 40 MG AND 125 MCG DIGOXIN BY BERTEK [Suspect]
     Indication: VASCULAR GRAFT
     Dosage: 1 TABLET  1 X DAILY PO
     Route: 048
     Dates: start: 19971120, end: 20080426

REACTIONS (5)
  - ACTIVITIES OF DAILY LIVING IMPAIRED [None]
  - DRUG LEVEL INCREASED [None]
  - FATIGUE [None]
  - HEART RATE DECREASED [None]
  - MALAISE [None]
